FAERS Safety Report 12796677 (Version 1)
Quarter: 2016Q3

REPORT INFORMATION
  Report Type: Spontaneous
  Country: CN (occurrence: CN)
  Receive Date: 20160929
  Receipt Date: 20160929
  Transmission Date: 20161109
  Serious: Yes (Hospitalization)
  Sender: FDA-Public Use
  Company Number: CN-009507513-1609CHN005949

PATIENT
  Age: 25 Year
  Sex: Female

DRUGS (3)
  1. LINEZOLID. [Concomitant]
     Active Substance: LINEZOLID
     Indication: FEBRILE NEUTROPENIA
     Dosage: 0.6 G, Q12H
     Route: 042
     Dates: start: 20160909, end: 20160912
  2. TIENAM [Suspect]
     Active Substance: CILASTATIN SODIUM\IMIPENEM
     Indication: FEBRILE NEUTROPENIA
     Dosage: Q18H(TOTAL DAILY DOSE 1.5 G)
     Route: 042
     Dates: start: 20160909, end: 20160909
  3. VORICONAZOLE. [Concomitant]
     Active Substance: VORICONAZOLE
     Indication: FEBRILE NEUTROPENIA
     Dosage: 200 MG, Q12H
     Route: 042
     Dates: start: 20160909, end: 20160912

REACTIONS (3)
  - Hypoaesthesia [Recovering/Resolving]
  - Hallucination [Recovering/Resolving]
  - Insomnia [Recovering/Resolving]

NARRATIVE: CASE EVENT DATE: 20160909
